FAERS Safety Report 7575422-0 (Version None)
Quarter: 2011Q2

REPORT INFORMATION
  Report Type: 
  Country: None (occurrence: None)
  Receive Date: 20110627
  Receipt Date: 20110617
  Transmission Date: 20111010
  Serious: Yes (Hospitalization, Other)
  Sender: FDA-Public Use
  Company Number: US-ASTRAZENECA-2011SE37514

PATIENT
  Sex: Female
  Weight: 81.7 kg

DRUGS (9)
  1. HYDROXYUREA [Suspect]
     Indication: THROMBOCYTOPENIA
  2. TRAMADOL HCL [Concomitant]
  3. HYDROCODONE [Concomitant]
  4. LACTULOSE [Concomitant]
  5. DROXIA [Concomitant]
  6. AMLODIPINE [Concomitant]
  7. TRAZODONE HCL [Concomitant]
  8. ARIMIDEX [Suspect]
     Indication: BREAST CANCER
     Route: 048
  9. OMEPRAZOLE [Suspect]
     Route: 048

REACTIONS (3)
  - THROMBOCYTOSIS [None]
  - BREAST LUMP REMOVAL [None]
  - RADIOTHERAPY [None]
